FAERS Safety Report 9913154 (Version 46)
Quarter: 2018Q4

REPORT INFORMATION
  Report Type: Report from Study
  Country: CA (occurrence: CA)
  Receive Date: 20140220
  Receipt Date: 20181221
  Transmission Date: 20190205
  Serious: Yes (Hospitalization, Other)
  Sender: FDA-Public Use
  Company Number: CA-ROCHE-1267788

PATIENT
  Age: 53 Year
  Sex: Female
  Weight: 50 kg

DRUGS (19)
  1. ACTEMRA [Suspect]
     Active Substance: TOCILIZUMAB
     Route: 042
     Dates: start: 20160621
  2. ACTEMRA [Suspect]
     Active Substance: TOCILIZUMAB
     Route: 042
     Dates: start: 20180319
  3. ACTEMRA [Suspect]
     Active Substance: TOCILIZUMAB
     Dosage: ON HOLD
     Route: 042
     Dates: start: 20151030
  4. PREDNISONE. [Concomitant]
     Active Substance: PREDNISONE
  5. NIFEDIPINE. [Concomitant]
     Active Substance: NIFEDIPINE
  6. LORAZEPAM. [Concomitant]
     Active Substance: LORAZEPAM
  7. RAMIPRIL. [Concomitant]
     Active Substance: RAMIPRIL
  8. ACTEMRA [Suspect]
     Active Substance: TOCILIZUMAB
     Route: 042
     Dates: start: 20150908
  9. CHAMPIX [Suspect]
     Active Substance: VARENICLINE TARTRATE
     Indication: PRODUCT USED FOR UNKNOWN INDICATION
     Route: 065
     Dates: start: 2015
  10. BUPROPION. [Concomitant]
     Active Substance: BUPROPION
  11. TYLENOL WITH CODEINE [Concomitant]
     Active Substance: ACETAMINOPHEN\CODEINE PHOSPHATE
  12. CELEBREX [Suspect]
     Active Substance: CELECOXIB
     Indication: PRODUCT USED FOR UNKNOWN INDICATION
     Route: 065
  13. PLAQUENIL [Concomitant]
     Active Substance: HYDROXYCHLOROQUINE SULFATE
  14. TYLENOL [Concomitant]
     Active Substance: ACETAMINOPHEN
  15. ACTEMRA [Suspect]
     Active Substance: TOCILIZUMAB
     Indication: RHEUMATOID ARTHRITIS
     Dosage: UNKNOWN DOSE, FREQUENCY
     Route: 042
     Dates: start: 20101111, end: 201211
  16. ACTEMRA [Suspect]
     Active Substance: TOCILIZUMAB
     Route: 042
     Dates: start: 20130516
  17. ACTEMRA [Suspect]
     Active Substance: TOCILIZUMAB
     Route: 042
  18. TYLENOL WITH CODEINE [Concomitant]
     Active Substance: ACETAMINOPHEN\CODEINE PHOSPHATE
  19. PANTOLOC [Concomitant]
     Active Substance: PANTOPRAZOLE SODIUM

REACTIONS (63)
  - Ankle fracture [Not Recovered/Not Resolved]
  - Bone loss [Not Recovered/Not Resolved]
  - Limb injury [Unknown]
  - Oropharyngeal pain [Unknown]
  - Rib fracture [Unknown]
  - Rheumatoid arthritis [Not Recovered/Not Resolved]
  - Vomiting [Unknown]
  - Ear pain [Unknown]
  - Back disorder [Not Recovered/Not Resolved]
  - Cystitis [Recovered/Resolved]
  - Asthma [Unknown]
  - Immobile [Unknown]
  - Neuralgia [Unknown]
  - Influenza [Unknown]
  - Bacterial infection [Not Recovered/Not Resolved]
  - Pain [Not Recovered/Not Resolved]
  - Headache [Unknown]
  - Gastric ulcer [Unknown]
  - Arthralgia [Not Recovered/Not Resolved]
  - Investigation abnormal [Unknown]
  - Pneumonia [Recovered/Resolved]
  - Colitis [Unknown]
  - Abdominal distension [Not Recovered/Not Resolved]
  - Vomiting [Unknown]
  - Muscle spasms [Not Recovered/Not Resolved]
  - Fall [Unknown]
  - Bile duct stone [Unknown]
  - Raynaud^s phenomenon [Unknown]
  - Irritable bowel syndrome [Unknown]
  - Cough [Unknown]
  - Nasopharyngitis [Not Recovered/Not Resolved]
  - Arthritis [Not Recovered/Not Resolved]
  - Cough [Unknown]
  - Pyrexia [Unknown]
  - Abdominal discomfort [Not Recovered/Not Resolved]
  - Fall [Unknown]
  - Weight decreased [Recovered/Resolved]
  - Lower respiratory tract infection [Not Recovered/Not Resolved]
  - Arthrodesis [Unknown]
  - Osteoarthritis [Not Recovered/Not Resolved]
  - Irritable bowel syndrome [Not Recovered/Not Resolved]
  - Blood pressure increased [Unknown]
  - Nasopharyngitis [Unknown]
  - Rhinorrhoea [Unknown]
  - Drug hypersensitivity [Unknown]
  - Nausea [Unknown]
  - Decreased appetite [Unknown]
  - Drug ineffective [Recovered/Resolved]
  - Abdominal pain lower [Not Recovered/Not Resolved]
  - Musculoskeletal pain [Not Recovered/Not Resolved]
  - Ligament sprain [Not Recovered/Not Resolved]
  - Gallbladder disorder [Unknown]
  - Malaise [Not Recovered/Not Resolved]
  - Infusion related reaction [Unknown]
  - Diarrhoea [Unknown]
  - Arthralgia [Not Recovered/Not Resolved]
  - Limb injury [Unknown]
  - Muscle strain [Unknown]
  - Ill-defined disorder [Unknown]
  - Insomnia [Not Recovered/Not Resolved]
  - Drug ineffective [Unknown]
  - Abdominal pain [Not Recovered/Not Resolved]
  - Myocardial infarction [Not Recovered/Not Resolved]

NARRATIVE: CASE EVENT DATE: 20131228
